FAERS Safety Report 8535575-4 (Version None)
Quarter: 2012Q2

REPORT INFORMATION
  Report Type: 
  Country: None (occurrence: None)
  Receive Date: 20120412
  Receipt Date: 20100310
  Transmission Date: 20120825
  Serious: Yes (Hospitalization)
  Sender: FDA-Public Use
  Company Number: PHEH2010US03026

PATIENT
  Sex: Male

DRUGS (1)
  1. CLOZAPINE [Suspect]
     Indication: SCHIZOAFFECTIVE DISORDER
     Dosage: UNK, ORAL
     Route: 048
     Dates: start: 20090601

REACTIONS (3)
  - TREATMENT NONCOMPLIANCE [None]
  - MENTAL DISORDER [None]
  - EOSINOPHIL COUNT INCREASED [None]
